FAERS Safety Report 8816224 (Version 2)
Quarter: 2012Q4

REPORT INFORMATION
  Report Type: 
  Country: US (occurrence: US)
  Receive Date: 20120930
  Receipt Date: 20121031
  Transmission Date: 20130627
  Serious: No
  Sender: FDA-Public Use
  Company Number: US-ELI_LILLY_AND_COMPANY-US201209005187

PATIENT
  Sex: Male
  Weight: 113.83 kg

DRUGS (1)
  1. ZYPREXA RELPREVV [Suspect]
     Indication: BIPOLAR II DISORDER
     Dosage: 300 mg, 2/W
     Route: 030
     Dates: start: 20120822, end: 20120920

REACTIONS (1)
  - Drug dose omission [Unknown]
